FAERS Safety Report 4946476-2 (Version None)
Quarter: 2006Q1

REPORT INFORMATION
  Report Type: 
  Country: None (occurrence: None)
  Receive Date: 20060313
  Receipt Date: 20060306
  Transmission Date: 20060701
  Serious: Yes (Other)
  Sender: FDA-Public Use
  Company Number: 2006032547

PATIENT
  Age: 2 Year
  Sex: Female

DRUGS (1)
  1. ZYRTEC [Suspect]
     Indication: ILL-DEFINED DISORDER

REACTIONS (4)
  - CRYING [None]
  - HALLUCINATION [None]
  - PSYCHOTIC DISORDER [None]
  - SLEEP TERROR [None]
